FAERS Safety Report 21855542 (Version 4)
Quarter: 2023Q2

REPORT INFORMATION
  Report Type: Spontaneous
  Country: US (occurrence: US)
  Receive Date: 20230112
  Receipt Date: 20230406
  Transmission Date: 20230722
  Serious: No
  Sender: FDA-Public Use
  Company Number: US-AMGEN-USASP2022227880

PATIENT
  Sex: Male

DRUGS (4)
  1. OTEZLA [Suspect]
     Active Substance: APREMILAST
     Indication: Asthma
     Dosage: 30 MILLIGRAM, BID
     Route: 048
     Dates: start: 20221001
  2. OTEZLA [Suspect]
     Active Substance: APREMILAST
     Indication: Off label use
  3. HUMIRA [Concomitant]
     Active Substance: ADALIMUMAB
     Dosage: 40MG/0.4ML
  4. DEVICE [Concomitant]
     Active Substance: DEVICE
     Dosage: 88MG/4ML (4=11SYR)

REACTIONS (3)
  - Fatigue [Not Recovered/Not Resolved]
  - Off label use [Unknown]
  - Condition aggravated [Not Recovered/Not Resolved]
